FAERS Safety Report 5547250-9 (Version None)
Quarter: 2007Q4

REPORT INFORMATION
  Report Type: 
  Country: None (occurrence: None)
  Receive Date: 20071211
  Receipt Date: 20071203
  Transmission Date: 20080405
  Serious: Yes (Other)
  Sender: FDA-Public Use
  Company Number: B0479355A

PATIENT
  Age: 26 Year
  Sex: Female

DRUGS (2)
  1. ZYBAN [Suspect]
     Route: 048
  2. YASMIN [Suspect]
     Indication: CONTRACEPTION
     Route: 065

REACTIONS (3)
  - DRUG INTERACTION [None]
  - PREGNANCY [None]
  - UNINTENDED PREGNANCY [None]
